FAERS Safety Report 4760397-X (Version None)
Quarter: 2005Q3

REPORT INFORMATION
  Report Type: 
  Country: None (occurrence: None)
  Receive Date: 20050902
  Receipt Date: 20050825
  Transmission Date: 20060218
  Serious: Yes (Hospitalization)
  Sender: FDA-Public Use
  Company Number: FR-GLAXOSMITHKLINE-B0391951A

PATIENT
  Age: 65 Year
  Sex: Male

DRUGS (1)
  1. AUGMENTIN '125' [Suspect]
     Indication: URINARY TRACT INFECTION
     Route: 048

REACTIONS (8)
  - ACUTE GENERALISED EXANTHEMATOUS PUSTULOSIS [None]
  - CHILLS [None]
  - DISEASE RECURRENCE [None]
  - DYSPNOEA [None]
  - ERYTHEMA [None]
  - HYPERKERATOSIS [None]
  - PYREXIA [None]
  - SKIN EXFOLIATION [None]
